FAERS Safety Report 24608164 (Version 2)
Quarter: 2024Q4

REPORT INFORMATION
  Report Type: Spontaneous
  Country: CA (occurrence: CA)
  Receive Date: 20241112
  Receipt Date: 20241114
  Transmission Date: 20250115
  Serious: Yes (Other)
  Sender: NOVARTIS
  Company Number: CA-002147023-NVSC2024CA215894

PATIENT
  Age: 82 Year
  Sex: Male

DRUGS (1)
  1. INDACATEROL ACETATE\MOMETASONE FUROATE [Suspect]
     Active Substance: INDACATEROL ACETATE\MOMETASONE FUROATE
     Indication: Product used for unknown indication
     Dosage: UNK, QD
     Route: 055

REACTIONS (1)
  - Asthenia [Recovered/Resolved]
